FAERS Safety Report 9813768 (Version 1)
Quarter: 2014Q1

REPORT INFORMATION
  Report Type: Spontaneous
  Country: US (occurrence: None)
  Receive Date: 20140109
  Receipt Date: 20140109
  Transmission Date: 20141002
  Serious: Yes (Hospitalization)
  Sender: FDA-Public Use
  Company Number: None

PATIENT
  Age: 83 Year
  Sex: Male
  Weight: 66.68 kg

DRUGS (7)
  1. DECITABINE [Suspect]
     Indication: ACUTE MYELOID LEUKAEMIA
     Dosage: 20MG/M2;QDX10; 28 DAY CYCL
  2. ALLOPURINOL [Concomitant]
  3. ATENOLOL [Concomitant]
  4. ERGOCALCIFEROL [Concomitant]
  5. ISOSORBIDE DINITRATE [Concomitant]
  6. LISINOPRIL [Concomitant]
  7. VALADYSIOVIR HCL [Concomitant]

REACTIONS (3)
  - Tooth infection [None]
  - Pyrexia [None]
  - Chills [None]
